FAERS Safety Report 15988387 (Version 1)
Quarter: 2019Q1

REPORT INFORMATION
  Report Type: Spontaneous
  Country: FR (occurrence: FR)
  Receive Date: 20190221
  Receipt Date: 20190221
  Transmission Date: 20190418
  Serious: Yes (Other)
  Sender: FDA-Public Use
  Company Number: FR-MERCK-1402FRA013674

PATIENT
  Age: 69 Year
  Sex: Female

DRUGS (4)
  1. ZELBORAF [Suspect]
     Active Substance: VEMURAFENIB
     Indication: METASTATIC MALIGNANT MELANOMA
     Dosage: 4 DF, BID
     Route: 048
     Dates: start: 20130614
  2. ZELBORAF [Suspect]
     Active Substance: VEMURAFENIB
     Dosage: 2 DF, BID
     Route: 048
     Dates: start: 20131205
  3. OFLOCET (OFLOXACIN HYDROCHLORIDE) [Concomitant]
     Active Substance: OFLOXACIN
     Dosage: UNK
     Route: 048
     Dates: start: 20131010, end: 20131020
  4. TEMODAL [Suspect]
     Active Substance: TEMOZOLOMIDE
     Indication: METASTATIC MALIGNANT MELANOMA
     Dosage: UNK
     Route: 048
     Dates: start: 20130912, end: 20130916

REACTIONS (2)
  - Cholestasis [Recovered/Resolved]
  - Blood alkaline phosphatase increased [Recovered/Resolved]

NARRATIVE: CASE EVENT DATE: 20131007
